FAERS Safety Report 21379842 (Version 1)
Quarter: 2022Q3

REPORT INFORMATION
  Report Type: Spontaneous
  Country: US (occurrence: US)
  Receive Date: 20220927
  Receipt Date: 20220927
  Transmission Date: 20221027
  Serious: Yes (Other)
  Sender: FDA-Public Use
  Company Number: US-VIIV HEALTHCARE LIMITED-US2022AMR135559

PATIENT

DRUGS (2)
  1. RILPIVIRINE [Suspect]
     Active Substance: RILPIVIRINE
     Indication: Product used for unknown indication
     Dosage: UNK, Z CABOTEGRAVIR 600MG/3 MLS, RILIPIVIRINE, 900 MG/ 3 MLS EVERY 2 MONTHS
     Route: 030
  2. CABOTEGRAVIR [Suspect]
     Active Substance: CABOTEGRAVIR
     Indication: Product used for unknown indication
     Dosage: UNK, Z CABOTEGRAVIR 600MG/3 MLS, RILIPIVIRINE, 900 MG/ 3 MLS EVERY 2 MONTHS
     Route: 030

REACTIONS (2)
  - Neoplasm malignant [Unknown]
  - Injection site pain [Unknown]
